FAERS Safety Report 12183725 (Version 2)
Quarter: 2016Q2

REPORT INFORMATION
  Report Type: Spontaneous
  Country: US (occurrence: US)
  Receive Date: 20160316
  Receipt Date: 20160428
  Transmission Date: 20160815
  Serious: Yes (Hospitalization)
  Sender: FDA-Public Use
  Company Number: US-VERTEX PHARMACEUTICALS-2016-001634

PATIENT
  Age: 49 Year
  Sex: Female

DRUGS (16)
  1. ORKAMBI [Suspect]
     Active Substance: IVACAFTOR\LUMACAFTOR
     Indication: CYSTIC FIBROSIS
     Dosage: 400/250 MG, BID
     Route: 048
     Dates: start: 20150803
  2. AMITIZA [Concomitant]
     Active Substance: LUBIPROSTONE
  3. AZITHROMYCIN ANHYDROUS. [Concomitant]
     Active Substance: AZITHROMYCIN ANHYDROUS
  4. ZENPEP [Concomitant]
     Active Substance: PANCRELIPASE AMYLASE\PANCRELIPASE LIPASE\PANCRELIPASE PROTEASE
  5. VITAMIN D [Concomitant]
     Active Substance: CHOLECALCIFEROL
  6. SPIRIVA [Concomitant]
     Active Substance: TIOTROPIUM BROMIDE MONOHYDRATE
  7. ZEGERID [Concomitant]
     Active Substance: OMEPRAZOLE\SODIUM BICARBONATE
  8. THEOPHYLLINE [Concomitant]
     Active Substance: THEOPHYLLINE ANHYDROUS
  9. ZOFRAN [Concomitant]
     Active Substance: ONDANSETRON HYDROCHLORIDE
  10. LINEZOLID. [Concomitant]
     Active Substance: LINEZOLID
  11. LOSARTAN. [Concomitant]
     Active Substance: LOSARTAN
  12. MEPHYTON [Concomitant]
     Active Substance: PHYTONADIONE
  13. ZYFLO [Concomitant]
     Active Substance: ZILEUTON
  14. PULMOZYME [Concomitant]
     Active Substance: DORNASE ALFA
  15. GABAPENTIN. [Concomitant]
     Active Substance: GABAPENTIN
  16. PENICILLIN [Concomitant]
     Active Substance: PENICILLIN

REACTIONS (1)
  - Respiratory failure [Recovered/Resolved]

NARRATIVE: CASE EVENT DATE: 20160307
